FAERS Safety Report 18465820 (Version 2)
Quarter: 2020Q4

REPORT INFORMATION
  Report Type: Spontaneous
  Country: US (occurrence: US)
  Receive Date: 20201105
  Receipt Date: 20201116
  Transmission Date: 20210114
  Serious: No
  Sender: FDA-Public Use
  Company Number: US-AMGEN-USASP2020176460

PATIENT
  Age: 86 Year
  Sex: Female
  Weight: 67.2 kg

DRUGS (1)
  1. REPATHA [Suspect]
     Active Substance: EVOLOCUMAB
     Indication: HYPERCHOLESTEROLAEMIA
     Dosage: 140 MILLIGRAM
     Route: 065
     Dates: start: 20171102

REACTIONS (3)
  - Hypoacusis [Unknown]
  - Fear of injection [Unknown]
  - Device difficult to use [Unknown]

NARRATIVE: CASE EVENT DATE: 2017
